FAERS Safety Report 23499634 (Version 2)
Quarter: 2024Q4

REPORT INFORMATION
  Report Type: Spontaneous
  Country: CN (occurrence: CN)
  Receive Date: 20240208
  Receipt Date: 20241223
  Transmission Date: 20250114
  Serious: No
  Sender: ABBVIE
  Company Number: CN-ABBVIE-5623160

PATIENT

DRUGS (1)
  1. OZURDEX [Suspect]
     Active Substance: DEXAMETHASONE
     Indication: Product used for unknown indication
     Dosage: TIME INTERVAL: AS NECESSARY
     Route: 050

REACTIONS (2)
  - Needle issue [Unknown]
  - Injection site pain [Unknown]
